FAERS Safety Report 15591048 (Version 1)
Quarter: 2018Q4

REPORT INFORMATION
  Report Type: Spontaneous
  Country: US (occurrence: US)
  Receive Date: 20181107
  Receipt Date: 20181107
  Transmission Date: 20190205
  Serious: No
  Sender: FDA-Public Use
  Company Number: US-SHIRE-US201843459

PATIENT
  Sex: Female

DRUGS (1)
  1. CINRYZE [Suspect]
     Active Substance: HUMAN C1-ESTERASE INHIBITOR
     Indication: PRODUCT USED FOR UNKNOWN INDICATION
     Dosage: 1000 IU, OTHER EVERY 3 DAYS
     Route: 042
     Dates: start: 20180810

REACTIONS (2)
  - Poor venous access [Recovering/Resolving]
  - Infusion site pain [Recovering/Resolving]
